FAERS Safety Report 4710817-1 (Version None)
Quarter: 2005Q3

REPORT INFORMATION
  Report Type: 
  Country: None (occurrence: None)
  Receive Date: 20050708
  Receipt Date: 20050623
  Transmission Date: 20060218
  Serious: Yes (Other)
  Sender: FDA-Public Use
  Company Number: TRP_0160_2005

PATIENT
  Sex: Female

DRUGS (2)
  1. RIBAVIRIN [Suspect]
     Dosage: 5 CAP QDAY PO
     Route: 048
  2. INTERFERON [Suspect]
     Dosage: DF QWK SC
     Route: 058

REACTIONS (4)
  - BIPOLAR I DISORDER [None]
  - DRUG EXPOSURE DURING PREGNANCY [None]
  - PREGNANCY [None]
  - SUICIDAL IDEATION [None]
